FAERS Safety Report 18895119 (Version 2)
Quarter: 2021Q1

REPORT INFORMATION
  Report Type: Spontaneous
  Country: US (occurrence: US)
  Receive Date: 20210216
  Receipt Date: 20210222
  Transmission Date: 20210420
  Serious: Yes (Hospitalization, Other)
  Sender: FDA-Public Use
  Company Number: US-AMGEN-USASP2021021619

PATIENT
  Sex: Female

DRUGS (1)
  1. PROLIA [Suspect]
     Active Substance: DENOSUMAB
     Indication: OSTEOPOROSIS POSTMENOPAUSAL
     Dosage: 60 MILLIGRAM, Q6MO
     Route: 065
     Dates: start: 20150205

REACTIONS (6)
  - Scapula fracture [Recovering/Resolving]
  - Fall [Unknown]
  - Rib fracture [Recovering/Resolving]
  - Tooth extraction [Unknown]
  - Pain [Recovering/Resolving]
  - Skin laceration [Recovering/Resolving]
